FAERS Safety Report 7096999-8 (Version None)
Quarter: 2010Q4

REPORT INFORMATION
  Report Type: 
  Country: None (occurrence: None)
  Receive Date: 20101111
  Receipt Date: 20100420
  Transmission Date: 20110411
  Serious: No
  Sender: FDA-Public Use
  Company Number: US-KINGPHARMUSA00001-K201000493

PATIENT
  Sex: Male

DRUGS (3)
  1. EMBEDA [Suspect]
     Indication: PAIN
     Dosage: 50 MG, BID
  2. EMBEDA [Suspect]
     Dosage: 100 MG, BID
  3. PERCOCET [Concomitant]
     Indication: PAIN
     Dosage: 10 MG, QID

REACTIONS (1)
  - DRUG WITHDRAWAL SYNDROME [None]
